FAERS Safety Report 5104772-2 (Version None)
Quarter: 2006Q3

REPORT INFORMATION
  Report Type: 
  Country: None (occurrence: None)
  Receive Date: 20060911
  Receipt Date: 20060824
  Transmission Date: 20061208
  Serious: Yes (Other)
  Sender: FDA-Public Use
  Company Number: US200608005041

PATIENT
  Age: 71 Year
  Sex: Male

DRUGS (1)
  1. CYMBALTA [Suspect]
     Dosage: 30 MG, DAILY (1/D); SEE IMAGE

REACTIONS (3)
  - BLOOD PRESSURE DECREASED [None]
  - MYDRIASIS [None]
  - TREMOR [None]
